FAERS Safety Report 17456388 (Version 1)
Quarter: 2020Q1

REPORT INFORMATION
  Report Type: Spontaneous
  Country: CN (occurrence: CN)
  Receive Date: 20200225
  Receipt Date: 20200225
  Transmission Date: 20200409
  Serious: Yes (Other)
  Sender: FDA-Public Use
  Company Number: CN-PFIZER INC-2020078545

PATIENT
  Age: 47 Year
  Sex: Female
  Weight: 59 kg

DRUGS (5)
  1. METHYLPREDNISOLONE SODIUM SUCCINATE. [Suspect]
     Active Substance: METHYLPREDNISOLONE SODIUM SUCCINATE
     Indication: EXOPHTHALMOS
     Dosage: 500 MG, ALTERNATE DAY
     Route: 041
     Dates: start: 20200113, end: 20200217
  2. CYCLOPHOSPHAMIDE. [Concomitant]
     Active Substance: CYCLOPHOSPHAMIDE
     Indication: EXOPHTHALMOS
     Dosage: 200 MG, ALTERNATE DAY
     Route: 041
     Dates: start: 20200113, end: 20200117
  3. YUN KE SHU [Concomitant]
     Indication: EXOPHTHALMOS
     Dosage: 11 MG, 1X/DAY
     Route: 040
     Dates: start: 20200110, end: 20200119
  4. SIMVASTATIN. [Concomitant]
     Active Substance: SIMVASTATIN
     Indication: LIPIDS ABNORMAL
  5. PANTOPRAZOLE [Concomitant]
     Active Substance: PANTOPRAZOLE
     Indication: GASTROOESOPHAGEAL REFLUX DISEASE
     Dosage: UNK

REACTIONS (5)
  - Swelling face [Recovering/Resolving]
  - Photophobia [Recovering/Resolving]
  - Exophthalmos [Recovering/Resolving]
  - Poor quality sleep [Recovering/Resolving]
  - Peripheral swelling [Recovering/Resolving]

NARRATIVE: CASE EVENT DATE: 20200115
